FAERS Safety Report 8318674-1 (Version None)
Quarter: 2012Q2

REPORT INFORMATION
  Report Type: 
  Country: None (occurrence: None)
  Receive Date: 20120427
  Receipt Date: 20120425
  Transmission Date: 20120825
  Serious: Yes (Death, Other)
  Sender: FDA-Public Use
  Company Number: GB-BAYER-2012-037730

PATIENT
  Age: 33 Year
  Sex: Female

DRUGS (5)
  1. PHENOXYMETHYLPENICILLIN [Concomitant]
     Dosage: UNK
     Dates: start: 20120302, end: 20120309
  2. NAPROXEN [Concomitant]
     Dosage: UNK
     Dates: start: 20120403
  3. ACETAMINOPHEN AND CODEINE PHOSPHATE [Concomitant]
     Dosage: UNK
     Dates: start: 20120403, end: 20120406
  4. MIRENA [Suspect]
     Dosage: 20 MCG/24HR, CONT
     Route: 015
     Dates: start: 20120327, end: 20120404
  5. FLUCONAZOLE [Concomitant]
     Dosage: UNK
     Dates: start: 20120314, end: 20120315

REACTIONS (7)
  - STREPTOCOCCAL SEPSIS [None]
  - CARDIAC DISORDER [None]
  - PAIN [None]
  - VAGINAL HAEMORRHAGE [None]
  - DEVICE EXPULSION [None]
  - SEPTIC SHOCK [None]
  - ABDOMINAL DISCOMFORT [None]
